FAERS Safety Report 4512418-7 (Version None)
Quarter: 2004Q4

REPORT INFORMATION
  Report Type: 
  Country: None (occurrence: None)
  Receive Date: 20041123
  Receipt Date: 20041112
  Transmission Date: 20050328
  Serious: Yes (Hospitalization)
  Sender: FDA-Public Use
  Company Number: A0533740A

PATIENT
  Age: 80 Year
  Sex: Male

DRUGS (1)
  1. TAGAMET HB [Suspect]
     Indication: GASTROOESOPHAGEAL REFLUX DISEASE
     Dosage: ORAL
     Route: 048
     Dates: start: 19850101, end: 19990101

REACTIONS (3)
  - DIZZINESS [None]
  - EPISTAXIS [None]
  - HYPERTENSION [None]
